FAERS Safety Report 14409828 (Version 1)
Quarter: 2018Q1

REPORT INFORMATION
  Report Type: Spontaneous
  Country: CN (occurrence: CN)
  Receive Date: 20180119
  Receipt Date: 20180119
  Transmission Date: 20180509
  Serious: Yes (Other)
  Sender: FDA-Public Use
  Company Number: CN-ABBVIE-18P-035-2226949-00

PATIENT
  Age: 85 Year
  Sex: Female

DRUGS (4)
  1. DEPAKINE [Suspect]
     Active Substance: VALPROATE SODIUM
     Indication: BIPOLAR DISORDER
  2. DEPAKINE CHRONO [Suspect]
     Active Substance: VALPROATE SODIUM
     Indication: MAJOR DEPRESSION
     Dosage: TABLET, EXTENDED RELEASE / 500 MILLIGRAM(S)
     Route: 048
  3. DEPAKINE CHRONO [Suspect]
     Active Substance: VALPROATE SODIUM
     Indication: BIPOLAR DISORDER
     Dosage: TABLET, EXTENDED RELEASE / 500 MILLIGRAM(S); 500-750MG
     Route: 048
  4. DEPAKINE [Suspect]
     Active Substance: VALPROATE SODIUM
     Indication: MAJOR DEPRESSION
     Route: 048

REACTIONS (4)
  - Dysphagia [Not Recovered/Not Resolved]
  - Oesophageal carcinoma [Not Recovered/Not Resolved]
  - Bipolar disorder [Recovering/Resolving]
  - Off label use [Unknown]

NARRATIVE: CASE EVENT DATE: 201709
